FAERS Safety Report 5838001-9 (Version None)
Quarter: 2008Q3

REPORT INFORMATION
  Report Type: 
  Country: None (occurrence: None)
  Receive Date: 20080808
  Receipt Date: 20080213
  Transmission Date: 20090109
  Serious: No
  Sender: FDA-Public Use
  Company Number: A0709385A

PATIENT
  Age: 63 Year
  Sex: Female

DRUGS (4)
  1. PAXIL [Suspect]
     Indication: DEPRESSION
     Dosage: 20MG PER DAY
     Route: 048
     Dates: start: 20040101
  2. VYTORIN [Concomitant]
  3. TRICOR [Concomitant]
  4. SYNTHROID [Concomitant]

REACTIONS (7)
  - ASTHENOPIA [None]
  - BACK PAIN [None]
  - EAR DISORDER [None]
  - HEAD DISCOMFORT [None]
  - MUSCULOSKELETAL PAIN [None]
  - NAUSEA [None]
  - WITHDRAWAL SYNDROME [None]
